FAERS Safety Report 7071687-2 (Version None)
Quarter: 2010Q4

REPORT INFORMATION
  Report Type: 
  Country: None (occurrence: None)
  Receive Date: 20101029
  Receipt Date: 20091008
  Transmission Date: 20110411
  Serious: No
  Sender: FDA-Public Use
  Company Number: A0810929A

PATIENT
  Age: 63 Year
  Sex: Male

DRUGS (5)
  1. ADVAIR DISKUS 100/50 [Suspect]
     Indication: CHRONIC OBSTRUCTIVE PULMONARY DISEASE
     Dosage: 1PUFF TWICE PER DAY
     Route: 055
     Dates: start: 20080801, end: 20090901
  2. VENTOLIN [Concomitant]
  3. SYMBICORT [Concomitant]
  4. EFFEXOR [Concomitant]
  5. CALAN [Concomitant]

REACTIONS (2)
  - INHALATION THERAPY [None]
  - NO THERAPEUTIC RESPONSE [None]
